FAERS Safety Report 6261684-9 (Version None)
Quarter: 2009Q3

REPORT INFORMATION
  Report Type: 
  Country: None (occurrence: None)
  Receive Date: 20090702
  Receipt Date: 20090320
  Transmission Date: 20100115
  Serious: No
  Sender: FDA-Public Use
  Company Number: 1000005419

PATIENT
  Age: 65 Year
  Sex: Female

DRUGS (8)
  1. BYSTOLIC [Suspect]
     Indication: HYPERTENSION
     Dosage: 20 MG (10 MG, 2 IN 1 D) : 10 MG (10 MG, 1 IN 1 D)
  2. COZAAR [Concomitant]
  3. AMLODIPINE [Concomitant]
  4. LISINOPRIL [Concomitant]
  5. TEKTURNA [Concomitant]
  6. FUROSEMIDE [Concomitant]
  7. PREDNISONE TAB [Concomitant]
  8. IMMUNOSUPPRESSANTS (NOS) [Concomitant]

REACTIONS (3)
  - ERYTHEMA [None]
  - FEELING HOT [None]
  - OEDEMA PERIPHERAL [None]
